FAERS Safety Report 9014995 (Version 1)
Quarter: 2013Q1

REPORT INFORMATION
  Report Type: Spontaneous
  Country: US (occurrence: None)
  Receive Date: 20130109
  Receipt Date: 20130109
  Transmission Date: 20140127
  Serious: Yes (Life-Threatening, Hospitalization, Disabling, Other)
  Sender: FDA-Public Use
  Company Number: None

PATIENT
  Age: 82 Year
  Sex: Female
  Weight: 72.58 kg

DRUGS (3)
  1. HALDOL [Suspect]
     Indication: MENTAL DISORDER DUE TO A GENERAL MEDICAL CONDITION
     Dosage: ESTIMATE 32.5 MG OVER 4-6DAYS IV BOLUS
     Route: 040
     Dates: start: 20121017, end: 20121031
  2. HALDOL [Suspect]
     Indication: AGITATION
     Dosage: ESTIMATE 32.5 MG OVER 4-6DAYS IV BOLUS
     Route: 040
     Dates: start: 20121017, end: 20121031
  3. REGLAN [Suspect]
     Indication: NAUSEA
     Dates: start: 20121103, end: 20121107

REACTIONS (24)
  - Procedural nausea [None]
  - Diet refusal [None]
  - Functional gastrointestinal disorder [None]
  - Cogwheel rigidity [None]
  - Refusal of treatment by patient [None]
  - Parkinsonian crisis [None]
  - Post procedural complication [None]
  - Mastication disorder [None]
  - Dysphagia [None]
  - Aphonia [None]
  - Drooling [None]
  - Oculogyric crisis [None]
  - Extrapyramidal disorder [None]
  - Choreoathetosis [None]
  - Contusion [None]
  - Scab [None]
  - Pain [None]
  - Hypernatraemia [None]
  - Dehydration [None]
  - Acidosis [None]
  - Gastrointestinal stoma complication [None]
  - Haemoglobin decreased [None]
  - Muscle contractions involuntary [None]
  - Tardive dyskinesia [None]
